FAERS Safety Report 9057934 (Version 2)
Quarter: 2013Q2

REPORT INFORMATION
  Report Type: Spontaneous
  Country: DK (occurrence: DK)
  Receive Date: 20130210
  Receipt Date: 20130528
  Transmission Date: 20140414
  Serious: Yes (Death, Hospitalization, Other)
  Sender: FDA-Public Use
  Company Number: DK-TEVA-384037ISR

PATIENT
  Age: 77 Year
  Sex: Male
  Weight: 80 kg

DRUGS (2)
  1. METFORMIN ^TEVA^ [Suspect]
     Indication: TYPE 2 DIABETES MELLITUS
     Dosage: 3000 MILLIGRAM DAILY; STRENGTH: 500 MG
     Route: 048
     Dates: end: 20130116
  2. EUCREAS [Suspect]
     Indication: DIABETES MELLITUS
     Dosage: STRENGTH: 50MG VILDAGLIPTIN, 1000MG METFORMIN HYDROCHLORIDE
     Route: 048
     Dates: end: 20130116

REACTIONS (2)
  - Gastroenteritis [Not Recovered/Not Resolved]
  - Pulseless electrical activity [Unknown]
